FAERS Safety Report 4370806-6 (Version None)
Quarter: 2004Q2

REPORT INFORMATION
  Report Type: 
  Country: None (occurrence: None)
  Receive Date: 20040604
  Receipt Date: 20040524
  Transmission Date: 20050107
  Serious: Yes (Hospitalization)
  Sender: FDA-Public Use
  Company Number: FR-JNJFOC-20040502785

PATIENT
  Age: 74 Year
  Sex: Female

DRUGS (10)
  1. TOPALGIC [Suspect]
     Indication: DRUG USE FOR UNKNOWN INDICATION
     Route: 065
  2. PREVISCAN [Interacting]
     Route: 049
  3. PREVISCAN [Interacting]
     Indication: DRUG USE FOR UNKNOWN INDICATION
     Route: 049
  4. RULID [Suspect]
     Indication: DRUG USE FOR UNKNOWN INDICATION
     Route: 049
  5. TAHOR [Suspect]
     Indication: DRUG USE FOR UNKNOWN INDICATION
  6. VOLTAREN [Suspect]
     Indication: DRUG USE FOR UNKNOWN INDICATION
     Route: 049
  7. LEVOTHYROXINE SODIUM [Suspect]
     Indication: THYROID DISORDER
     Route: 049
  8. CORDARONE [Suspect]
     Indication: DRUG USE FOR UNKNOWN INDICATION
     Route: 049
  9. WARFARIN SODIUM [Suspect]
     Indication: DRUG USE FOR UNKNOWN INDICATION
     Route: 049
  10. TRIFLUCAN [Concomitant]

REACTIONS (3)
  - ARTERIOVENOUS FISTULA SITE HAEMORRHAGE [None]
  - HAEMOGLOBIN DECREASED [None]
  - INTERNATIONAL NORMALISED RATIO INCREASED [None]
